FAERS Safety Report 8547334-7 (Version None)
Quarter: 2012Q3

REPORT INFORMATION
  Report Type: 
  Country: None (occurrence: None)
  Receive Date: 20120727
  Receipt Date: 20120320
  Transmission Date: 20120928
  Serious: No
  Sender: FDA-Public Use
  Company Number: US-ASTRAZENECA-2012SE19029

PATIENT
  Age: 49 Year
  Sex: Male

DRUGS (5)
  1. CYMBALTA [Concomitant]
     Indication: DEPRESSION
  2. SEROQUEL XR [Suspect]
     Indication: MAJOR DEPRESSION
     Route: 048
     Dates: start: 20111201
  3. SEROQUEL XR [Suspect]
     Indication: BIPOLAR DISORDER
     Route: 048
     Dates: start: 20111201
  4. LYRICA [Concomitant]
     Indication: DIABETIC NEUROPATHY
  5. CADUET [Concomitant]

REACTIONS (1)
  - LARYNGITIS [None]
